FAERS Safety Report 5270809-3 (Version None)
Quarter: 2007Q1

REPORT INFORMATION
  Report Type: 
  Country: None (occurrence: None)
  Receive Date: 20070319
  Receipt Date: 20070319
  Transmission Date: 20070707
  Serious: Yes (Hospitalization)
  Sender: FDA-Public Use
  Company Number: None

PATIENT
  Age: 89 Year
  Sex: Male
  Weight: 76.3 kg

DRUGS (2)
  1. DOCETAXEL [Suspect]
  2. DEXAMETHASONE 4MG TAB [Suspect]

REACTIONS (1)
  - CONSTIPATION [None]
